FAERS Safety Report 4737846-6 (Version None)
Quarter: 2005Q3

REPORT INFORMATION
  Report Type: 
  Country: None (occurrence: None)
  Receive Date: 20050805
  Receipt Date: 20050726
  Transmission Date: 20060218
  Serious: Yes (Death)
  Sender: FDA-Public Use
  Company Number: 2005107247

PATIENT
  Age: 60 Year
  Sex: Female

DRUGS (2)
  1. SULPERAZON (SULBACTAM, CEFOPERAZONE) [Suspect]
     Indication: PROPHYLAXIS
     Dosage: 4.5 GRAM (1.5 GRAM, TID; INTERVAL: EVERY DAY), INTRAVENOUS
     Route: 042
     Dates: start: 20050716, end: 20050722
  2. METRONIDAZOLE [Concomitant]

REACTIONS (8)
  - BACTERIAL INFECTION [None]
  - CULTURE WOUND POSITIVE [None]
  - DRUG INEFFECTIVE [None]
  - LOWER RESPIRATORY TRACT INFECTION [None]
  - MULTIPLE-DRUG RESISTANCE [None]
  - POSTOPERATIVE INFECTION [None]
  - PYREXIA [None]
  - SEPSIS [None]
